FAERS Safety Report 23748020 (Version 1)
Quarter: 2024Q2

REPORT INFORMATION
  Report Type: Spontaneous
  Country: US (occurrence: None)
  Receive Date: 20240415
  Receipt Date: 20240415
  Transmission Date: 20240715
  Serious: Yes (Other)
  Sender: FDA-Public Use
  Company Number: None

PATIENT
  Age: 23 Year
  Sex: Male
  Weight: 78.75 kg

DRUGS (3)
  1. ZOLOFT [Suspect]
     Active Substance: SERTRALINE HYDROCHLORIDE
     Indication: Autism spectrum disorder
     Dosage: FREQUENCY : DAILY;?
     Route: 048
  2. MELATONIN [Concomitant]
     Active Substance: MELATONIN
  3. MIANSERIN [Concomitant]
     Active Substance: MIANSERIN

REACTIONS (2)
  - Anhedonia [None]
  - Sexual dysfunction [None]

NARRATIVE: CASE EVENT DATE: 20191207
